FAERS Safety Report 23911977 (Version 2)
Quarter: 2024Q2

REPORT INFORMATION
  Report Type: Spontaneous
  Country: US (occurrence: US)
  Receive Date: 20240528
  Receipt Date: 20240619
  Transmission Date: 20240716
  Serious: Yes (Hospitalization, Other)
  Sender: FDA-Public Use
  Company Number: US-Calliditas-2024CAL00845

PATIENT
  Age: 38 Year
  Sex: Female

DRUGS (6)
  1. TARPEYO [Suspect]
     Active Substance: BUDESONIDE
     Indication: IgA nephropathy
     Route: 048
     Dates: start: 20231014
  2. ATORVASTATIN [Concomitant]
     Active Substance: ATORVASTATIN
  3. CALTRATE [Concomitant]
     Active Substance: CALCIUM CARBONATE
  4. COENZYME Q10 [Concomitant]
     Active Substance: DIETARY SUPPLEMENT\UBIDECARENONE
  5. LOSARTAN [Concomitant]
     Active Substance: LOSARTAN
  6. NIFEDIPINE [Concomitant]
     Active Substance: NIFEDIPINE
     Dosage: 1 TABLET (30 MG TOTAL) BY MOUTH IN THE MORNING AND 1 TABLET (30 MF TOTAL) BEFORE BEDTIME

REACTIONS (4)
  - Dizziness [Recovered/Resolved]
  - Gastroenteritis rotavirus [Recovered/Resolved]
  - Sepsis [Unknown]
  - Acute kidney injury [Recovering/Resolving]

NARRATIVE: CASE EVENT DATE: 20240503
